FAERS Safety Report 24350815 (Version 2)
Quarter: 2024Q4

REPORT INFORMATION
  Report Type: Spontaneous
  Country: US (occurrence: US)
  Receive Date: 20240923
  Receipt Date: 20241001
  Transmission Date: 20250115
  Serious: Yes (Other)
  Sender: IPSEN
  Company Number: US-IPSEN Group, Research and Development-2024-18778

PATIENT
  Age: 86 Year
  Sex: Male
  Weight: 86.18 kg

DRUGS (1)
  1. TAZVERIK [Suspect]
     Active Substance: TAZEMETOSTAT HYDROBROMIDE
     Indication: Follicular lymphoma
     Route: 048
     Dates: start: 20240809

REACTIONS (3)
  - Seizure [Recovering/Resolving]
  - Loss of consciousness [Unknown]
  - Nausea [Unknown]
